FAERS Safety Report 8086930-0 (Version None)
Quarter: 2012Q1

REPORT INFORMATION
  Report Type: 
  Country: None (occurrence: None)
  Receive Date: 20120128
  Receipt Date: 20110520
  Transmission Date: 20120608
  Serious: No
  Sender: FDA-Public Use
  Company Number: US-ABBOTT-11P-163-0727367-00

PATIENT
  Sex: Female
  Weight: 57.658 kg

DRUGS (2)
  1. FLORASTOR [Concomitant]
     Indication: CROHN'S DISEASE
  2. HUMIRA [Suspect]
     Indication: CROHN'S DISEASE
     Dates: start: 20110301

REACTIONS (2)
  - PAIN IN EXTREMITY [None]
  - ABASIA [None]
